FAERS Safety Report 6150886-8 (Version None)
Quarter: 2009Q2

REPORT INFORMATION
  Report Type: 
  Country: None (occurrence: None)
  Receive Date: 20090408
  Receipt Date: 20090402
  Transmission Date: 20091009
  Serious: Yes (Other)
  Sender: FDA-Public Use
  Company Number: CHPA2009US08480

PATIENT
  Age: 63 Year
  Sex: Male

DRUGS (1)
  1. EXCEDRIN ES BACK + BODY (NCH) (ACETYLSALICYLIC ACID, ACETAMINOPHEN (PA [Suspect]
     Dosage: 2 DF, QD (FOR 4-5 DAYS), ORAL
     Route: 048
     Dates: start: 20090301, end: 20090301

REACTIONS (1)
  - HYPERSENSITIVITY [None]
